FAERS Safety Report 12863817 (Version 4)
Quarter: 2016Q4

REPORT INFORMATION
  Report Type: Spontaneous
  Country: US (occurrence: US)
  Receive Date: 20161019
  Receipt Date: 20161205
  Transmission Date: 20170207
  Serious: Yes (Hospitalization)
  Sender: FDA-Public Use
  Company Number: US-ACTELION-A-US2016-143876

PATIENT
  Age: 66 Year
  Sex: Female
  Weight: 104.31 kg

DRUGS (5)
  1. SILDENAFIL. [Concomitant]
     Active Substance: SILDENAFIL
     Indication: PULMONARY ARTERIAL HYPERTENSION
     Dosage: 20 MG, TID
  2. OPSUMIT [Suspect]
     Active Substance: MACITENTAN
     Indication: PULMONARY ARTERIAL HYPERTENSION
     Dosage: 10 MG, QD
     Route: 048
     Dates: start: 20160607, end: 201610
  3. REMODULIN [Suspect]
     Active Substance: TREPROSTINIL
     Indication: PULMONARY ARTERIAL HYPERTENSION
     Dosage: 21 NG/KG, UNK
     Route: 042
     Dates: start: 20090409
  4. COUMADIN [Concomitant]
     Active Substance: WARFARIN SODIUM
     Dosage: UNK
  5. LETAIRIS [Concomitant]
     Active Substance: AMBRISENTAN

REACTIONS (9)
  - Anaemia [Recovered/Resolved]
  - Aortic stenosis [Recovering/Resolving]
  - Malaise [Unknown]
  - Hypervolaemia [Unknown]
  - Cardiac failure congestive [Not Recovered/Not Resolved]
  - Fluid retention [Unknown]
  - Pulmonary arterial wedge pressure increased [Unknown]
  - Activities of daily living impaired [Unknown]
  - Dyspnoea [Unknown]

NARRATIVE: CASE EVENT DATE: 20160926
